FAERS Safety Report 17145584 (Version 4)
Quarter: 2020Q2

REPORT INFORMATION
  Report Type: Report from Study
  Country: US (occurrence: US)
  Receive Date: 20191212
  Receipt Date: 20200403
  Transmission Date: 20200713
  Serious: No
  Sender: FDA-Public Use
  Company Number: NVSC2019US062966

PATIENT
  Age: 70 Year
  Sex: Male

DRUGS (1)
  1. BEOVU [Suspect]
     Active Substance: BROLUCIZUMAB-DBLL
     Indication: AGE-RELATED MACULAR DEGENERATION
     Dosage: 1 DF
     Route: 065
     Dates: start: 20191128

REACTIONS (6)
  - Eye pruritus [Recovered/Resolved]
  - Fall [Recovered/Resolved]
  - Ocular discomfort [Recovered/Resolved]
  - Fatigue [Unknown]
  - Thinking abnormal [Unknown]
  - Epistaxis [Recovered/Resolved]

NARRATIVE: CASE EVENT DATE: 20191129
